FAERS Safety Report 8296162-9 (Version None)
Quarter: 2012Q2

REPORT INFORMATION
  Report Type: 
  Country: None (occurrence: None)
  Receive Date: 20120418
  Receipt Date: 20120331
  Transmission Date: 20120825
  Serious: Yes (Other)
  Sender: FDA-Public Use
  Company Number: DE-GLAXOSMITHKLINE-D0075127A

PATIENT
  Sex: Female

DRUGS (2)
  1. LAMICTAL [Suspect]
     Dosage: 1000MG SINGLE DOSE
     Route: 048
     Dates: start: 20120119, end: 20120119
  2. LORAZEPAM [Suspect]
     Dosage: 10MG SINGLE DOSE
     Route: 048
     Dates: start: 20120119, end: 20120119

REACTIONS (3)
  - DIZZINESS [None]
  - DRUG ABUSE [None]
  - INTENTIONAL OVERDOSE [None]
